FAERS Safety Report 17181151 (Version 4)
Quarter: 2021Q1

REPORT INFORMATION
  Report Type: Report from Study
  Country: None (occurrence: US)
  Receive Date: 20191220
  Receipt Date: 20210127
  Transmission Date: 20210419
  Serious: Yes (Hospitalization, Other)
  Sender: FDA-Public Use
  Company Number: US-INSMED, INC.-US-INS-19-03379

PATIENT
  Age: 67 Year
  Sex: Male

DRUGS (1)
  1. ARIKAYCE [Suspect]
     Active Substance: AMIKACIN
     Indication: MYCOBACTERIAL INFECTION
     Route: 055
     Dates: start: 20190917, end: 20201014

REACTIONS (10)
  - Tinnitus [Unknown]
  - Blood creatinine increased [Unknown]
  - Blood pressure increased [Unknown]
  - Epistaxis [Unknown]
  - Decreased appetite [Unknown]
  - Hypoacusis [Unknown]
  - Device issue [Unknown]
  - Respiratory distress [Unknown]
  - Deafness [Unknown]
  - Productive cough [Unknown]

NARRATIVE: CASE EVENT DATE: 2019
